FAERS Safety Report 4992561-9 (Version None)
Quarter: 2006Q1

REPORT INFORMATION
  Report Type: 
  Country: None (occurrence: None)
  Receive Date: 20060313
  Receipt Date: 20051129
  Transmission Date: 20060701
  Serious: Yes (Other)
  Sender: FDA-Public Use
  Company Number: PHEH2005US13050

PATIENT
  Age: 29 Year
  Sex: Male

DRUGS (2)
  1. TRILEPTAL [Suspect]
  2. CLOZAPINE [Suspect]
     Dosage: 100 MG

REACTIONS (1)
  - CONVULSION [None]
